FAERS Safety Report 15923076 (Version 8)
Quarter: 2020Q1

REPORT INFORMATION
  Report Type: Report from Study
  Country: US (occurrence: US)
  Receive Date: 20190206
  Receipt Date: 20200203
  Transmission Date: 20200409
  Serious: Yes (Other)
  Sender: FDA-Public Use
  Company Number: PHEH2019US005521

PATIENT
  Sex: Female

DRUGS (1)
  1. GILENYA [Suspect]
     Active Substance: FINGOLIMOD HYDROCHLORIDE
     Indication: MULTIPLE SCLEROSIS
     Dosage: 0.5 MG, QD
     Route: 048
     Dates: start: 20190104

REACTIONS (9)
  - Malaise [Unknown]
  - Headache [Not Recovered/Not Resolved]
  - Vitamin D decreased [Unknown]
  - Vision blurred [Unknown]
  - Memory impairment [Unknown]
  - Optic neuritis [Unknown]
  - Chest discomfort [Recovering/Resolving]
  - Temperature intolerance [Unknown]
  - White blood cell count decreased [Unknown]
